FAERS Safety Report 4617090-3 (Version None)
Quarter: 2005Q1

REPORT INFORMATION
  Report Type: 
  Country: None (occurrence: None)
  Receive Date: 20050323
  Receipt Date: 20050228
  Transmission Date: 20050727
  Serious: Yes (Death)
  Sender: FDA-Public Use
  Company Number: FR-ROCHE-397051

PATIENT
  Age: 55 Year
  Sex: Male

DRUGS (9)
  1. CYMEVAN [Suspect]
     Route: 048
     Dates: start: 20041214, end: 20050114
  2. CLAMOXYL [Suspect]
     Indication: ENDOCARDITIS
     Route: 048
     Dates: start: 20041222, end: 20050114
  3. VFEND [Suspect]
     Indication: ASPERGILLOSIS
     Route: 048
     Dates: start: 20041230, end: 20050104
  4. FOSCAVIR [Suspect]
     Route: 042
     Dates: start: 20041230, end: 20050114
  5. GENTAMICIN SULFATE [Suspect]
     Indication: ENDOCARDITIS
     Dosage: TRADE NAME REPORTED AS PAMPHARA.
     Route: 042
     Dates: start: 20041222, end: 20050114
  6. FUNGIZONE [Suspect]
     Indication: ASPERGILLOSIS
     Route: 042
     Dates: start: 20050104, end: 20050114
  7. BACTRIM [Concomitant]
     Route: 065
     Dates: start: 20041214, end: 20041230
  8. EUPANTOL [Concomitant]
     Dates: start: 20041214
  9. CORTANCYL [Concomitant]
     Dates: start: 20041214

REACTIONS (2)
  - CHOLESTASIS [None]
  - TOXIC EPIDERMAL NECROLYSIS [None]
